FAERS Safety Report 5441282-7 (Version None)
Quarter: 2007Q3

REPORT INFORMATION
  Report Type: 
  Country: None (occurrence: None)
  Receive Date: 20070901
  Receipt Date: 20070824
  Transmission Date: 20080115
  Serious: Yes (Death)
  Sender: FDA-Public Use
  Company Number: JP-ALLERGAN-0709569US

PATIENT
  Sex: Female

DRUGS (9)
  1. ALESION TABLET [Suspect]
     Indication: RHINITIS ALLERGIC
     Dosage: 20 MG, UNK
     Route: 048
     Dates: start: 20060216, end: 20070408
  2. LAXOBERON [Suspect]
     Indication: CONSTIPATION
     Dosage: 3.75 MG, Q WEEK
     Route: 048
     Dates: start: 20020513, end: 20070723
  3. CHLORPROMAZINE HCL [Suspect]
     Indication: SCHIZOPHRENIA
     Dosage: 150 MG, QD
     Route: 048
     Dates: start: 20020513, end: 20070723
  4. LEVOTOMIN [Suspect]
     Indication: SCHIZOPHRENIA
     Dosage: 5 MG, UNK
     Route: 048
     Dates: start: 20020520, end: 20070723
  5. ABILIFY [Suspect]
     Indication: SCHIZOPHRENIA
     Dosage: 18 MG, UNK
     Route: 048
     Dates: start: 20060912, end: 20070723
  6. DEPAKENE [Suspect]
     Indication: SCHIZOPHRENIA
     Dosage: 600 MG, UNK
     Route: 048
     Dates: start: 20050729, end: 20070723
  7. BIPERIDEN HYDROCHLORIDE TAB [Suspect]
     Indication: PARKINSON'S DISEASE
     Dosage: 3 MG, UNK
     Route: 048
     Dates: start: 20020513, end: 20070723
  8. SILECE [Suspect]
     Indication: INSOMNIA
     Dosage: 2 MG, UNK
     Route: 048
     Dates: start: 20060507, end: 20070723
  9. SENNOSIDE [Suspect]
     Indication: CONSTIPATION
     Dosage: 36 MG, UNK
     Route: 048
     Dates: start: 20060507, end: 20070723

REACTIONS (1)
  - CARDIO-RESPIRATORY ARREST [None]
